FAERS Safety Report 13334639 (Version 2)
Quarter: 2017Q1

REPORT INFORMATION
  Report Type: Spontaneous
  Country: JP (occurrence: JP)
  Receive Date: 20170314
  Receipt Date: 20170329
  Transmission Date: 20170428
  Serious: Yes (Hospitalization)
  Sender: FDA-Public Use
  Company Number: JP-AMGEN-JPNSP2017038368

PATIENT
  Age: 78 Year
  Sex: Female

DRUGS (1)
  1. PRALIA [Suspect]
     Active Substance: DENOSUMAB
     Indication: OSTEOPOROSIS
     Dosage: UNK, ONCE
     Route: 065
     Dates: start: 20161215, end: 20161215

REACTIONS (3)
  - Blood phosphorus increased [Recovering/Resolving]
  - Generalised oedema [Recovering/Resolving]
  - Cellulitis [Recovering/Resolving]
